FAERS Safety Report 9518148 (Version 6)
Quarter: 2014Q3

REPORT INFORMATION
  Report Type: Spontaneous
  Country: DE (occurrence: DE)
  Receive Date: 20130912
  Receipt Date: 20140731
  Transmission Date: 20150326
  Serious: Yes (Hospitalization, Other)
  Sender: FDA-Public Use
  Company Number: DE-JNJFOC-20130413767

PATIENT
  Age: 81 Year
  Sex: Female

DRUGS (7)
  1. XARELTO [Suspect]
     Active Substance: RIVAROXABAN
     Indication: ATRIAL FIBRILLATION
     Route: 048
     Dates: start: 20120328, end: 20120824
  2. VALSARTAN. [Concomitant]
     Active Substance: VALSARTAN
     Indication: HYPERTENSION
     Route: 048
     Dates: start: 20120116, end: 20120921
  3. CARVEDILOL. [Concomitant]
     Active Substance: CARVEDILOL
     Indication: ATRIAL FIBRILLATION
     Route: 065
     Dates: start: 20120328
  4. RAMIPRIL. [Concomitant]
     Active Substance: RAMIPRIL
     Indication: HYPERTENSION
     Route: 048
  5. XARELTO [Suspect]
     Active Substance: RIVAROXABAN
     Indication: CEREBROVASCULAR ACCIDENT PROPHYLAXIS
     Route: 048
     Dates: start: 20120328, end: 20120824
  6. TOREM [Concomitant]
     Active Substance: TORSEMIDE
     Route: 048
     Dates: start: 20080925, end: 20130813
  7. FOSAVANCE [Concomitant]
     Active Substance: ALENDRONATE SODIUM\CHOLECALCIFEROL
     Indication: OSTEOPOROSIS
     Route: 048
     Dates: start: 20110420

REACTIONS (18)
  - Skin ulcer [Unknown]
  - Inflammation [Unknown]
  - Pain in extremity [Unknown]
  - Blister [Unknown]
  - Blood blister [Recovering/Resolving]
  - Skin haemorrhage [Unknown]
  - Renal failure acute [Unknown]
  - Pruritus [Unknown]
  - Vasculitis [Recovering/Resolving]
  - Skin necrosis [Unknown]
  - Dyspnoea [Unknown]
  - Petechiae [Recovered/Resolved]
  - Skin ulcer [Not Recovered/Not Resolved]
  - Vasculitis [Unknown]
  - Asthenia [Unknown]
  - Skin ulcer haemorrhage [Unknown]
  - Rash macular [Recovering/Resolving]
  - Skin ulcer [Recovering/Resolving]

NARRATIVE: CASE EVENT DATE: 20120817
